FAERS Safety Report 9275893 (Version 2)
Quarter: 2013Q2

REPORT INFORMATION
  Report Type: Report from Study
  Country: TR (occurrence: TR)
  Receive Date: 20130507
  Receipt Date: 20130531
  Transmission Date: 20140414
  Serious: Yes (Hospitalization)
  Sender: FDA-Public Use
  Company Number: TR-ABBOTT-13P-161-1084669-00

PATIENT
  Age: 32 Year
  Sex: Female
  Weight: 38 kg

DRUGS (2)
  1. HUMIRA [Suspect]
     Indication: INTESTINAL FISTULA
     Route: 058
     Dates: start: 20130307
  2. HUMIRA [Suspect]
     Indication: CROHN^S DISEASE

REACTIONS (3)
  - C-reactive protein increased [Recovering/Resolving]
  - Infection [Recovering/Resolving]
  - Haemoglobin decreased [Recovering/Resolving]
